FAERS Safety Report 8460201-2 (Version None)
Quarter: 2012Q2

REPORT INFORMATION
  Report Type: 
  Country: None (occurrence: None)
  Receive Date: 20120622
  Receipt Date: 20120613
  Transmission Date: 20120825
  Serious: Yes (Other)
  Sender: FDA-Public Use
  Company Number: DE-TEVA-344569USA

PATIENT

DRUGS (1)
  1. TREANDA [Suspect]
     Route: 042

REACTIONS (1)
  - HEPATOTOXICITY [None]
